FAERS Safety Report 15801514 (Version 1)
Quarter: 2019Q1

REPORT INFORMATION
  Report Type: Spontaneous
  Country: FR (occurrence: FR)
  Receive Date: 20190109
  Receipt Date: 20190109
  Transmission Date: 20190417
  Serious: Yes (Death)
  Sender: FDA-Public Use
  Company Number: FR-MYLANLABS-2019M1000388

PATIENT
  Age: 78 Year
  Sex: Female

DRUGS (2)
  1. WARFARIN [Suspect]
     Active Substance: WARFARIN
     Indication: ANTICOAGULANT THERAPY
     Route: 065
  2. GELATIN [Suspect]
     Active Substance: GELATIN
     Indication: THERAPEUTIC EMBOLISATION
     Dosage: GELATIN SPONGE TORPEDOS (GELITASPON, GELITA MEDICAL) CUT IN 2X2 MM PROVIDED COMPLETE OCCLUSION OF...

REACTIONS (9)
  - Skin necrosis [Fatal]
  - Skin infection [Fatal]
  - Abdominal wall haematoma [Fatal]
  - Anaemia [Fatal]
  - Sepsis [Fatal]
  - Disseminated intravascular coagulation [Fatal]
  - Acidosis [Fatal]
  - Haematoma infection [Fatal]
  - Shock [Fatal]
